FAERS Safety Report 25426259 (Version 4)
Quarter: 2025Q2

REPORT INFORMATION
  Report Type: Report from Study
  Country: US (occurrence: US)
  Receive Date: 20250612
  Receipt Date: 20250627
  Transmission Date: 20250717
  Serious: Yes (Hospitalization, Other)
  Sender: SANDOZ
  Company Number: US-SANDOZ-SDZ2025US040269

PATIENT
  Age: 72 Year
  Sex: Male
  Weight: 87.8 kg

DRUGS (13)
  1. FLUOROURACIL [Suspect]
     Active Substance: FLUOROURACIL
     Indication: Confusional state
     Route: 042
     Dates: start: 20250603, end: 20250603
  2. FLUOROURACIL [Suspect]
     Active Substance: FLUOROURACIL
     Indication: Neoplasm
  3. IRINOTECAN [Suspect]
     Active Substance: IRINOTECAN
     Indication: Confusional state
     Route: 042
     Dates: start: 20250603, end: 20250603
  4. IRINOTECAN [Suspect]
     Active Substance: IRINOTECAN
     Indication: Neoplasm
  5. LEUCOVORIN [Suspect]
     Active Substance: LEUCOVORIN\LEUCOVORIN CALCIUM
     Indication: Confusional state
     Route: 042
     Dates: start: 20250603, end: 20250603
  6. LEUCOVORIN [Suspect]
     Active Substance: LEUCOVORIN\LEUCOVORIN CALCIUM
     Indication: Neoplasm
  7. OXALIPLATIN [Suspect]
     Active Substance: OXALIPLATIN
     Indication: Confusional state
     Route: 042
     Dates: start: 20250603, end: 20250603
  8. OXALIPLATIN [Suspect]
     Active Substance: OXALIPLATIN
     Indication: Neoplasm
  9. LOSARTAN [Concomitant]
     Active Substance: LOSARTAN
     Dosage: 50 MG, BID
     Route: 048
     Dates: start: 2024
  10. LOSARTAN [Concomitant]
     Active Substance: LOSARTAN
     Indication: Hypertension
     Dosage: 50 MG, BID
     Route: 048
     Dates: start: 2024
  11. OMEPRAZOLE [Concomitant]
     Active Substance: OMEPRAZOLE
     Indication: Gastrooesophageal reflux disease
     Dosage: 20 MG, QD
     Route: 048
     Dates: start: 2024
  12. ROSUVASTATIN [Concomitant]
     Active Substance: ROSUVASTATIN
     Indication: Hyperlipidaemia
     Dosage: 5 MG, QD
     Route: 048
     Dates: start: 2025
  13. ROSUVASTATIN [Concomitant]
     Active Substance: ROSUVASTATIN
     Dosage: 50 MG, QD
     Route: 048
     Dates: start: 20250605, end: 20250607

REACTIONS (5)
  - Pulmonary congestion [Not Recovered/Not Resolved]
  - Confusional state [Not Recovered/Not Resolved]
  - Embolic stroke [Not Recovered/Not Resolved]
  - Cerebrovascular accident [Not Recovered/Not Resolved]
  - Sepsis [Not Recovered/Not Resolved]

NARRATIVE: CASE EVENT DATE: 20250605
